FAERS Safety Report 6127939-3 (Version None)
Quarter: 2009Q1

REPORT INFORMATION
  Report Type: 
  Country: None (occurrence: None)
  Receive Date: 20090323
  Receipt Date: 20090306
  Transmission Date: 20090719
  Serious: Yes (Hospitalization, Other)
  Sender: FDA-Public Use
  Company Number: CH-ASTRAZENECA-2004PK01476

PATIENT
  Age: 26935 Day
  Sex: Female
  Weight: 54 kg

DRUGS (4)
  1. IRESSA [Suspect]
     Indication: OROPHARYNGEAL CANCER STAGE UNSPECIFIED
     Route: 048
     Dates: start: 20040802
  2. CISPLATIN [Suspect]
     Indication: OROPHARYNGEAL CANCER STAGE UNSPECIFIED
     Route: 042
     Dates: start: 20040802
  3. RADIOTHERAPY [Suspect]
     Indication: OROPHARYNGEAL CANCER STAGE UNSPECIFIED
  4. IMPORTAL [Concomitant]
     Indication: CONSTIPATION
     Dates: start: 20040804

REACTIONS (2)
  - MUCOSAL INFLAMMATION [None]
  - ODYNOPHAGIA [None]
